FAERS Safety Report 9000541 (Version 2)
Quarter: 2013Q1

REPORT INFORMATION
  Report Type: Spontaneous
  Country: US (occurrence: US)
  Receive Date: 20130107
  Receipt Date: 20130111
  Transmission Date: 20140127
  Serious: No
  Sender: FDA-Public Use
  Company Number: US-009507513-1212USA008753

PATIENT
  Age: 22 Year
  Sex: Female
  Weight: 81.63 kg

DRUGS (2)
  1. IMPLANON [Suspect]
     Indication: CONTRACEPTION
     Dosage: UNK
     Dates: start: 20120417, end: 20121211
  2. IMPLANON [Suspect]
     Dosage: UNK
     Dates: start: 20121211

REACTIONS (4)
  - Device physical property issue [Unknown]
  - Product quality issue [Unknown]
  - Device difficult to use [Unknown]
  - Medical device complication [Unknown]
